FAERS Safety Report 10644063 (Version 1)
Quarter: 2014Q4

REPORT INFORMATION
  Report Type: Spontaneous
  Country: JP (occurrence: JP)
  Receive Date: 20141210
  Receipt Date: 20141210
  Transmission Date: 20150529
  Serious: Yes (Life-Threatening)
  Sender: FDA-Public Use
  Company Number: JP-PFIZER INC-2014337648

PATIENT
  Age: 77 Year
  Sex: Male
  Weight: 41 kg

DRUGS (17)
  1. BUP-4 [Concomitant]
     Active Substance: PROPIVERINE
     Dosage: UNK
     Route: 048
  2. ZOPICLONE [Concomitant]
     Active Substance: ZOPICLONE
     Route: 048
  3. CARBOCISTEINE [Concomitant]
     Active Substance: CARBOCYSTEINE
     Dosage: UNK
     Route: 048
  4. ZOSYN [Suspect]
     Active Substance: PIPERACILLIN SODIUM\TAZOBACTAM SODIUM
     Indication: PNEUMONIA
     Dosage: 4.5 G, 4X/DAY
     Route: 042
     Dates: start: 20140813, end: 20140908
  5. FLAGYL [Suspect]
     Active Substance: METRONIDAZOLE\METRONIDAZOLE HYDROCHLORIDE
     Indication: PNEUMONIA
     Dosage: 2250 MG, DAILY
     Route: 048
     Dates: start: 20140812, end: 20140821
  6. EPADEL S [Concomitant]
     Active Substance: ETHYL ICOSAPENTATE\ICOSAPENT
     Dosage: UNK
     Route: 048
  7. PARIET [Concomitant]
     Active Substance: RABEPRAZOLE SODIUM
     Dosage: UNK
     Route: 048
  8. MIDAZOLAM [Concomitant]
     Active Substance: MIDAZOLAM\MIDAZOLAM HYDROCHLORIDE
     Dosage: UNK
     Route: 042
  9. BENZALIN [Concomitant]
     Active Substance: NITRAZEPAM
     Dosage: UNK
     Route: 048
  10. VANCOMYCIN HCL [Suspect]
     Active Substance: VANCOMYCIN HYDROCHLORIDE
     Indication: PNEUMONIA
     Dosage: 2 G, DAILY
     Route: 042
     Dates: start: 20140905, end: 20140908
  11. ATORVASTATIN CALCIUM. [Suspect]
     Active Substance: ATORVASTATIN CALCIUM
     Indication: DYSLIPIDAEMIA
     Dosage: 10 MG, DAILY
     Route: 048
  12. CILOSTAZOL. [Concomitant]
     Active Substance: CILOSTAZOL
     Dosage: UNK
     Route: 048
  13. URIEF [Concomitant]
     Active Substance: SILODOSIN
     Dosage: UNK
     Route: 048
  14. TAKEPRON [Concomitant]
     Active Substance: LANSOPRAZOLE
     Dosage: UNK
     Route: 042
  15. NICERGOLINE [Concomitant]
     Active Substance: NICERGOLINE
     Dosage: UNK
     Route: 048
  16. TRAMCET [Concomitant]
     Active Substance: ACETAMINOPHEN\TRAMADOL
     Dosage: UNK
     Route: 048
  17. AMBROXOL HYDROCHLORIDE [Concomitant]
     Active Substance: AMBROXOL HYDROCHLORIDE
     Dosage: UNK
     Route: 048

REACTIONS (2)
  - Renal disorder [Not Recovered/Not Resolved]
  - Rash [Recovered/Resolved]

NARRATIVE: CASE EVENT DATE: 20140905
